FAERS Safety Report 21595318 (Version 1)
Quarter: 2022Q4

REPORT INFORMATION
  Report Type: Spontaneous
  Country: CH (occurrence: CH)
  Receive Date: 20221115
  Receipt Date: 20221115
  Transmission Date: 20230113
  Serious: No
  Sender: FDA-Public Use
  Company Number: CH-CELGENE-CHE-20210300373

PATIENT
  Age: 44 Year
  Sex: Female
  Weight: 66 kg

DRUGS (2)
  1. ZEPOSIA [Suspect]
     Active Substance: OZANIMOD HYDROCHLORIDE
     Indication: Multiple sclerosis
     Dosage: 0.92 MILLIGRAM
     Route: 048
     Dates: start: 20210129
  2. ZEPOSIA [Suspect]
     Active Substance: OZANIMOD HYDROCHLORIDE
     Indication: Product used for unknown indication

REACTIONS (4)
  - Headache [Recovering/Resolving]
  - Rhinorrhoea [Recovering/Resolving]
  - Oral herpes [Recovered/Resolved]
  - Rhinorrhoea [Unknown]

NARRATIVE: CASE EVENT DATE: 20210101
